FAERS Safety Report 13952916 (Version 1)
Quarter: 2017Q3

REPORT INFORMATION
  Report Type: Spontaneous
  Country: US (occurrence: US)
  Receive Date: 20170911
  Receipt Date: 20170911
  Transmission Date: 20171128
  Serious: Yes (Hospitalization)
  Sender: FDA-Public Use
  Company Number: US-TEVA-792976USA

PATIENT
  Age: 49 Year
  Sex: Female

DRUGS (1)
  1. FENTANYL. [Suspect]
     Active Substance: FENTANYL
     Route: 062

REACTIONS (3)
  - Dizziness [Unknown]
  - Incorrect drug administration rate [Unknown]
  - Confusional state [Unknown]

NARRATIVE: CASE EVENT DATE: 2017
